FAERS Safety Report 4465769-9 (Version None)
Quarter: 2004Q4

REPORT INFORMATION
  Report Type: 
  Country: None (occurrence: None)
  Receive Date: 20041001
  Receipt Date: 20041001
  Transmission Date: 20050328
  Serious: Yes (Hospitalization)
  Sender: FDA-Public Use
  Company Number: None

PATIENT
  Sex: Male
  Weight: 51.8 kg

DRUGS (7)
  1. OXCARBAZEPINE  300 MG TABLET [Suspect]
     Indication: PAIN MANAGEMENT
     Dosage: 300 MG   BID   ORAL
     Route: 048
     Dates: start: 20040921, end: 20040927
  2. OXCARBAZEPINE [Suspect]
     Dosage: 150 MG   BID   ORAL
     Route: 048
     Dates: start: 20040927, end: 20040928
  3. GLYCOGEN [Concomitant]
  4. METHADONE HCL [Concomitant]
  5. MORPHINE [Concomitant]
  6. PRILOSEC [Concomitant]
  7. SERTRALINE HCL [Concomitant]

REACTIONS (1)
  - BLOOD SODIUM DECREASED [None]
